FAERS Safety Report 8791935 (Version 2)
Quarter: 2012Q4

REPORT INFORMATION
  Report Type: Report from Study
  Country: DE (occurrence: DE)
  Receive Date: 20120918
  Receipt Date: 20121105
  Transmission Date: 20130627
  Serious: Yes (Hospitalization)
  Sender: FDA-Public Use
  Company Number: DE-PFIZER INC-2012226327

PATIENT
  Age: 76 Year
  Sex: Male
  Weight: 70 kg

DRUGS (12)
  1. SUNITINIB MALATE [Suspect]
     Dosage: 50 mg, 1x/day
     Dates: start: 20120726, end: 20120811
  2. MARCUMAR [Concomitant]
  3. AMIODARONE [Concomitant]
     Dosage: 200 mg, UNK
  4. SALMETEROL [Concomitant]
     Dosage: 50 ug, UNK
  5. FLUTICASONE [Concomitant]
     Dosage: 250 ug, UNK
  6. SIMVASTATIN [Concomitant]
     Dosage: 20 mg, UNK
  7. ALLOPURINOL [Concomitant]
     Dosage: 100 mg, UNK
  8. AMLODIPINE [Concomitant]
     Dosage: 5 mg, UNK
  9. NOVALGIN [Concomitant]
     Dosage: 20000 IE every 14 days
  10. METAMIZOLE [Concomitant]
     Dosage: 40 Gtt, 4x/day
  11. VALORON N [Concomitant]
     Dosage: UNK Gtt, as needed
  12. COLECALCIFEROL [Concomitant]

REACTIONS (4)
  - General physical health deterioration [Recovering/Resolving]
  - Fatigue [Recovering/Resolving]
  - Oesophagitis [Not Recovered/Not Resolved]
  - Dysphagia [Not Recovered/Not Resolved]
